FAERS Safety Report 10306793 (Version 1)
Quarter: 2014Q3

REPORT INFORMATION
  Report Type: Spontaneous
  Country: US (occurrence: US)
  Receive Date: 20140715
  Receipt Date: 20140715
  Transmission Date: 20150326
  Serious: No
  Sender: FDA-Public Use
  Company Number: US-GILEAD-2014-0108722

PATIENT
  Age: 77 Year
  Sex: Male

DRUGS (10)
  1. ALLOPURINOL. [Concomitant]
     Active Substance: ALLOPURINOL
  2. VITAMIN D3 [Concomitant]
     Active Substance: CHOLECALCIFEROL
  3. WARFARIN [Concomitant]
     Active Substance: WARFARIN
  4. LETAIRIS [Suspect]
     Active Substance: AMBRISENTAN
     Indication: COR PULMONALE CHRONIC
     Dosage: 10 MG, QD
     Route: 065
     Dates: start: 20120524
  5. TAMSULOSIN [Concomitant]
     Active Substance: TAMSULOSIN
  6. ULORIC [Concomitant]
     Active Substance: FEBUXOSTAT
  7. ADEMPAS [Suspect]
     Active Substance: RIOCIGUAT
  8. RAPAFLO [Concomitant]
     Active Substance: SILODOSIN
  9. FUROSEMIDE. [Concomitant]
     Active Substance: FUROSEMIDE
  10. LANOXIN [Concomitant]
     Active Substance: DIGOXIN

REACTIONS (8)
  - Malaise [Not Recovered/Not Resolved]
  - Asthenia [Not Recovered/Not Resolved]
  - Decreased appetite [Not Recovered/Not Resolved]
  - Nausea [Not Recovered/Not Resolved]
  - Diarrhoea [Not Recovered/Not Resolved]
  - Abdominal pain upper [Not Recovered/Not Resolved]
  - Fatigue [Not Recovered/Not Resolved]
  - Peripheral swelling [Not Recovered/Not Resolved]

NARRATIVE: CASE EVENT DATE: 20140613
